FAERS Safety Report 7158291-2 (Version None)
Quarter: 2010Q4

REPORT INFORMATION
  Report Type: 
  Country: None (occurrence: None)
  Receive Date: 20101214
  Receipt Date: 20101206
  Transmission Date: 20110411
  Serious: Yes (Hospitalization)
  Sender: FDA-Public Use
  Company Number: DE-PFIZER INC-2010169307

PATIENT
  Age: 80 Year
  Sex: Male
  Weight: 76 kg

DRUGS (11)
  1. PANTOZOL [Suspect]
     Indication: PROPHYLAXIS AGAINST GASTROINTESTINAL ULCER
     Dosage: 40 MG, 1X/DAY
     Route: 048
     Dates: start: 20090101
  2. CIPROFLOXACIN [Suspect]
     Indication: NASOPHARYNGITIS
     Dosage: 500 MG, 2X/DAY
     Route: 048
     Dates: start: 20100812, end: 20100816
  3. PENTASA [Concomitant]
     Indication: INFLAMMATORY BOWEL DISEASE
     Dosage: 1000 MG, 2X/DAY
     Route: 048
     Dates: start: 20100907
  4. ACETYLSALICYLIC ACID [Concomitant]
     Indication: ISCHAEMIC HEART DISEASE PROPHYLAXIS
     Dosage: 100 MG, 1X/DAY
     Route: 048
     Dates: start: 20081201
  5. PENTAERYTHRITOL TETRANITRATE [Concomitant]
     Indication: CORONARY ARTERY DISEASE
     Dosage: 80 MG, 2X/DAY
     Route: 048
     Dates: start: 20100301
  6. BISOPROLOL [Concomitant]
     Indication: HYPERTENSION
     Dosage: 5 MG, 1X/DAY
     Route: 048
     Dates: start: 20090101
  7. CANDESARTAN [Concomitant]
     Indication: HYPERTENSION
     Dosage: 16 MG, 1X/DAY
     Route: 048
     Dates: start: 20090201
  8. SIMVASTATIN [Concomitant]
     Indication: HYPERLIPIDAEMIA
     Dosage: 20 MG, 1X/DAY
     Route: 048
     Dates: start: 20090101
  9. TORASEMIDE [Concomitant]
     Indication: HYPERTENSION
     Dosage: 10 MG, 1X/DAY
     Route: 048
     Dates: start: 20100301
  10. FORMOTEROL [Concomitant]
     Dosage: 12 UG, 2X/DAY
     Dates: start: 20081201
  11. BEROTEC [Concomitant]
     Indication: EMPHYSEMA
     Dosage: 100 UG, 2X/DAY
     Dates: start: 20081201

REACTIONS (1)
  - PSEUDOMEMBRANOUS COLITIS [None]
